FAERS Safety Report 10247859 (Version 6)
Quarter: 2015Q2

REPORT INFORMATION
  Report Type: Report from Study
  Country: US (occurrence: US)
  Receive Date: 20140619
  Receipt Date: 20150605
  Transmission Date: 20150821
  Serious: Yes (Congenital Anomaly, Other)
  Sender: FDA-Public Use
  Company Number: US-TEVA-443718USA

PATIENT
  Age: 0 Day
  Sex: Female
  Weight: 8.22 kg

DRUGS (8)
  1. PAXIL [Suspect]
     Active Substance: PAROXETINE HYDROCHLORIDE
     Indication: CATAPLEXY
     Dosage: 40 MILLIGRAM DAILY;
     Dates: start: 2013
  2. ZOLOFT [Concomitant]
     Active Substance: SERTRALINE HYDROCHLORIDE
     Dates: start: 2013
  3. DIFLUCAN [Concomitant]
     Active Substance: FLUCONAZOLE
     Dates: start: 2013
  4. RITALIN [Concomitant]
     Active Substance: METHYLPHENIDATE HYDROCHLORIDE
  5. TOPAMAX [Concomitant]
     Active Substance: TOPIRAMATE
     Dates: start: 2013
  6. SYMBICORT [Concomitant]
     Active Substance: BUDESONIDE\FORMOTEROL FUMARATE DIHYDRATE
     Indication: CATAPLEXY
     Dates: start: 2013
  7. RITALIN [Concomitant]
     Active Substance: METHYLPHENIDATE HYDROCHLORIDE
     Indication: NARCOLEPSY
     Dates: start: 2013
  8. NUVIGIL [Suspect]
     Active Substance: ARMODAFINIL
     Route: 064

REACTIONS (7)
  - Foetal exposure during pregnancy [Unknown]
  - Coarctation of the aorta [Unknown]
  - Neonatal respiratory distress syndrome [Unknown]
  - Congenital heart valve disorder [Unknown]
  - Congenital pneumonia [Unknown]
  - Systolic hypertension [Unknown]
  - Cardiac murmur [Unknown]

NARRATIVE: CASE EVENT DATE: 20140520
